FAERS Safety Report 6530140-2 (Version None)
Quarter: 2010Q1

REPORT INFORMATION
  Report Type: 
  Country: None (occurrence: None)
  Receive Date: 20100107
  Receipt Date: 20091230
  Transmission Date: 20100710
  Serious: Yes (Other)
  Sender: FDA-Public Use
  Company Number: US-CELGENEUS-163-21880-09122373

PATIENT
  Age: 70 Year
  Sex: Male
  Weight: 87.4 kg

DRUGS (4)
  1. REVLIMID [Suspect]
     Indication: PROSTATE CANCER
     Route: 048
     Dates: start: 20090812, end: 20091221
  2. DOCETAXEL [Suspect]
     Indication: PROSTATE CANCER
     Route: 051
     Dates: start: 20090812, end: 20091214
  3. BEVACIZUMAB [Suspect]
     Indication: PROSTATE CANCER
     Route: 051
     Dates: start: 20090812, end: 20091214
  4. PREDNISONE [Suspect]
     Indication: PROSTATE CANCER
     Route: 048
     Dates: start: 20090812, end: 20091222

REACTIONS (1)
  - VENTRICULAR TACHYCARDIA [None]
